FAERS Safety Report 14578449 (Version 5)
Quarter: 2020Q4

REPORT INFORMATION
  Report Type: Spontaneous
  Country: US (occurrence: US)
  Receive Date: 20180227
  Receipt Date: 20201222
  Transmission Date: 20210113
  Serious: No
  Sender: FDA-Public Use
  Company Number: US-PFIZER INC-2018076807

PATIENT
  Age: 70 Year
  Sex: Female

DRUGS (4)
  1. NAPROXEN. [Concomitant]
     Active Substance: NAPROXEN
     Indication: PAIN
     Dosage: 500 MG (I TAKE TWICE A DAY BUT I DON^T BUT ONE A DAY WHAT AS NEEDED)
     Route: 048
  2. ESTRADIOL. [Concomitant]
     Active Substance: ESTRADIOL
     Indication: HYSTERECTOMY
     Dosage: 0.5 MG
  3. TRAZODONE [Concomitant]
     Active Substance: TRAZODONE HYDROCHLORIDE
     Indication: BLOOD PRESSURE ABNORMAL
     Dosage: UNK
  4. XELJANZ [Suspect]
     Active Substance: TOFACITINIB CITRATE
     Indication: RHEUMATOID ARTHRITIS
     Dosage: 5 MG, 2X/DAY
     Route: 048

REACTIONS (16)
  - Gait disturbance [Unknown]
  - Loss of personal independence in daily activities [Unknown]
  - Contusion [Unknown]
  - Peripheral swelling [Unknown]
  - Sensitivity to weather change [Unknown]
  - Joint injury [Unknown]
  - Impaired driving ability [Unknown]
  - Muscle spasms [Unknown]
  - Fear of falling [Unknown]
  - Stress [Unknown]
  - Nodule [Unknown]
  - Sleep disorder [Unknown]
  - Depressed mood [Unknown]
  - Fall [Unknown]
  - Dyspnoea [Unknown]
  - Mobility decreased [Unknown]
